FAERS Safety Report 13205049 (Version 3)
Quarter: 2017Q1

REPORT INFORMATION
  Report Type: Report from Study
  Country: US (occurrence: US)
  Receive Date: 20170209
  Receipt Date: 20170317
  Transmission Date: 20170428
  Serious: Yes (Other)
  Sender: FDA-Public Use
  Company Number: US-009507513-1701USA014230

PATIENT
  Sex: Female

DRUGS (11)
  1. NEXIUM I.V. [Concomitant]
     Active Substance: ESOMEPRAZOLE SODIUM
  2. LASIX [Concomitant]
     Active Substance: FUROSEMIDE
  3. ISENTRESS [Suspect]
     Active Substance: RALTEGRAVIR POTASSIUM
     Indication: HIV INFECTION
     Dosage: UNK
     Route: 048
  4. SYNTHROID [Concomitant]
     Active Substance: LEVOTHYROXINE SODIUM
  5. SILVADENE [Concomitant]
     Active Substance: SILVER SULFADIAZINE
  6. LANOXIN [Concomitant]
     Active Substance: DIGOXIN
  7. TRUVADA [Concomitant]
     Active Substance: EMTRICITABINE\TENOFOVIR DISOPROXIL FUMARATE
  8. ALDACTONE [Concomitant]
     Active Substance: SPIRONOLACTONE
  9. COUMADIN [Concomitant]
     Active Substance: WARFARIN SODIUM
  10. ESTRACE [Concomitant]
     Active Substance: ESTRADIOL
  11. K-DUR [Concomitant]
     Active Substance: POTASSIUM CHLORIDE

REACTIONS (7)
  - Hepatic cirrhosis [Unknown]
  - Restrictive cardiomyopathy [Unknown]
  - Paracentesis [Unknown]
  - Cardiac failure [Unknown]
  - Hepatitis C [Unknown]
  - Anaemia [Unknown]
  - Uterine prolapse [Unknown]
